FAERS Safety Report 6548250-2 (Version None)
Quarter: 2010Q1

REPORT INFORMATION
  Report Type: 
  Country: None (occurrence: None)
  Receive Date: 20100124
  Receipt Date: 20090324
  Transmission Date: 20100710
  Serious: No
  Sender: FDA-Public Use
  Company Number: US-ALLERGAN-0903909US

PATIENT
  Age: 73 Year
  Sex: Female

DRUGS (4)
  1. RESTASIS [Suspect]
     Indication: DRY EYE
     Dosage: UNK, UNK
     Route: 047
     Dates: start: 20090301
  2. TOPROL-XL [Concomitant]
     Dosage: 50 MG, BID
  3. SYNTHROID [Concomitant]
     Dosage: 0.25 MG, QD
  4. ATIVAN [Concomitant]
     Dosage: UNK, QHS

REACTIONS (3)
  - DIZZINESS [None]
  - DRY MOUTH [None]
  - NAUSEA [None]
